FAERS Safety Report 14802606 (Version 13)
Quarter: 2020Q2

REPORT INFORMATION
  Report Type: Report from Study
  Country: US (occurrence: US)
  Receive Date: 20180424
  Receipt Date: 20200521
  Transmission Date: 20200713
  Serious: Yes (Death, Life-Threatening, Hospitalization, Other)
  Sender: FDA-Public Use
  Company Number: US-ACTELION-A-US2016-140043

PATIENT
  Age: 67 Year
  Sex: Female
  Weight: 73.47 kg

DRUGS (3)
  1. NIFEDIPINE. [Concomitant]
     Active Substance: NIFEDIPINE
  2. ORENITRAM [Concomitant]
     Active Substance: TREPROSTINIL
     Dosage: 0.875 MG, TID
  3. OPSUMIT [Suspect]
     Active Substance: MACITENTAN
     Indication: PULMONARY ARTERIAL HYPERTENSION
     Dosage: 10 MG, QD
     Route: 048
     Dates: start: 20160322

REACTIONS (26)
  - Cardiac index increased [Recovered/Resolved with Sequelae]
  - Gastroenteritis viral [Not Recovered/Not Resolved]
  - Pneumonia [Unknown]
  - Taste disorder [Unknown]
  - Acute myocardial infarction [Recovered/Resolved with Sequelae]
  - Upper limb fracture [Unknown]
  - Oedema peripheral [Not Recovered/Not Resolved]
  - Gastrooesophageal reflux disease [Recovered/Resolved]
  - Dizziness [Recovering/Resolving]
  - Vomiting [Unknown]
  - Nasopharyngitis [Unknown]
  - Blood creatine phosphokinase MB increased [Recovered/Resolved with Sequelae]
  - Chest pain [Recovered/Resolved with Sequelae]
  - Diarrhoea [Unknown]
  - Product dose omission [Unknown]
  - Viral upper respiratory tract infection [Unknown]
  - Blood creatine phosphokinase increased [Recovered/Resolved with Sequelae]
  - Palpitations [Recovered/Resolved with Sequelae]
  - Scleroderma [Fatal]
  - Hospitalisation [Unknown]
  - Chest discomfort [Recovered/Resolved]
  - Dyspnoea [Unknown]
  - Cough [Unknown]
  - Troponin I increased [Recovered/Resolved with Sequelae]
  - Deafness [Unknown]
  - Malaise [Unknown]

NARRATIVE: CASE EVENT DATE: 2016
